FAERS Safety Report 24137633 (Version 1)
Quarter: 2024Q3

REPORT INFORMATION
  Report Type: Spontaneous
  Country: NL (occurrence: NL)
  Receive Date: 20240725
  Receipt Date: 20240725
  Transmission Date: 20241017
  Serious: Yes (Hospitalization)
  Sender: FRESENIUS KABI
  Company Number: None

PATIENT
  Age: 75 Year
  Sex: Male

DRUGS (1)
  1. TYENNE [Suspect]
     Active Substance: TOCILIZUMAB-AAZG
     Indication: Rheumatic disorder
     Dates: start: 20240515

REACTIONS (3)
  - Heart rate irregular [Recovering/Resolving]
  - Syncope [Recovering/Resolving]
  - Product substitution issue [Unknown]
